FAERS Safety Report 17483704 (Version 1)
Quarter: 2020Q1

REPORT INFORMATION
  Report Type: Spontaneous
  Country: US (occurrence: US)
  Receive Date: 20200301
  Receipt Date: 20200301
  Transmission Date: 20200409
  Serious: Yes (Other)
  Sender: FDA-Public Use
  Company Number: None

PATIENT
  Age: 43 Year
  Sex: Female
  Weight: 92.25 kg

DRUGS (1)
  1. XOFLUZA [Suspect]
     Active Substance: BALOXAVIR MARBOXIL
     Indication: INFLUENZA
     Dosage: ?          OTHER FREQUENCY:2 TABLETS 1 DAY;?
     Route: 048
     Dates: start: 20200211, end: 20200211

REACTIONS (1)
  - Bronchitis [None]

NARRATIVE: CASE EVENT DATE: 20200213
